FAERS Safety Report 21705703 (Version 5)
Quarter: 2023Q2

REPORT INFORMATION
  Report Type: Report from Study
  Country: US (occurrence: US)
  Receive Date: 20221209
  Receipt Date: 20230531
  Transmission Date: 20230722
  Serious: Yes (Other)
  Sender: FDA-Public Use
  Company Number: US-002147023-NVSC2022US285869

PATIENT
  Sex: Male

DRUGS (1)
  1. COSENTYX [Suspect]
     Active Substance: SECUKINUMAB
     Indication: Psoriasis
     Dosage: 300 MG, QMO (EVERY FOUR WEEKS)
     Route: 058

REACTIONS (8)
  - Psoriatic arthropathy [Unknown]
  - Injection site bruising [Unknown]
  - Fatigue [Unknown]
  - COVID-19 [Unknown]
  - Rebound psoriasis [Recovering/Resolving]
  - Dry skin [Unknown]
  - Scar [Unknown]
  - Skin burning sensation [Unknown]
